FAERS Safety Report 5673433-3 (Version None)
Quarter: 2008Q2

REPORT INFORMATION
  Report Type: 
  Country: None (occurrence: None)
  Receive Date: 20080219
  Receipt Date: 20071022
  Transmission Date: 20081010
  Serious: No
  Sender: FDA-Public Use
  Company Number: TPA2007A02157

PATIENT
  Age: 72 Year
  Sex: Male
  Weight: 103.4201 kg

DRUGS (7)
  1. ROZEREM [Suspect]
     Indication: INSOMNIA
     Dosage: 8 MG, QHS AS REQUIRED, PER ORAL
     Route: 048
     Dates: start: 20071012
  2. LEVEL RIGHT OTC (HERBAL PREPARATION) (TABLETS) [Concomitant]
  3. CASODEX [Concomitant]
  4. ZOLADEX [Concomitant]
  5. ASPIRIN [Concomitant]
  6. VITAMIN SUPPLEMENT (VITAMINS) (TABLETS) [Concomitant]
  7. MAGNESIUM/POTASSIUM OTC (MAGNESIUM, POTASSIUM) (TABLETS) [Concomitant]

REACTIONS (1)
  - MIDDLE INSOMNIA [None]
